FAERS Safety Report 19890631 (Version 1)
Quarter: 2021Q3

REPORT INFORMATION
  Report Type: Spontaneous
  Country: US (occurrence: CO)
  Receive Date: 20210927
  Receipt Date: 20210927
  Transmission Date: 20211014
  Serious: Yes (Other)
  Sender: FDA-Public Use
  Company Number: CO-BIOMARINAP-CO-2021-138748

PATIENT
  Age: 22 Year
  Sex: Male

DRUGS (1)
  1. ALDURAZYME [Suspect]
     Active Substance: LARONIDASE
     Indication: MUCOPOLYSACCHARIDOSIS I
     Dosage: 10 DOSAGE FORM, QW
     Route: 042
     Dates: start: 20080117

REACTIONS (1)
  - HIV infection [Recovering/Resolving]

NARRATIVE: CASE EVENT DATE: 2018
